FAERS Safety Report 6579963-4 (Version None)
Quarter: 2010Q1

REPORT INFORMATION
  Report Type: 
  Country: None (occurrence: None)
  Receive Date: 20100212
  Receipt Date: 20100201
  Transmission Date: 20100710
  Serious: Yes (Death, Other)
  Sender: FDA-Public Use
  Company Number: SE-PFIZER INC-2010012661

PATIENT
  Age: 61 Year
  Sex: Male

DRUGS (8)
  1. ARTHROTEC [Suspect]
     Dosage: UNK
     Dates: end: 20091029
  2. TROMBYL [Suspect]
     Indication: CARDIAC DISORDER
     Dosage: UNK
     Route: 048
     Dates: start: 20091030
  3. IBUPROFEN [Suspect]
     Dosage: UNK
     Dates: end: 20091029
  4. PLAVIX [Suspect]
     Indication: CARDIAC DISORDER
     Dosage: UNK
     Route: 048
     Dates: start: 20091030
  5. SIMVASTATIN [Concomitant]
     Dosage: UNK
  6. ALVEDON [Concomitant]
     Dosage: UNK
  7. EMCONCOR [Concomitant]
     Dosage: UNK
  8. GLYTRIN [Concomitant]
     Dosage: UNK

REACTIONS (1)
  - DUODENAL ULCER HAEMORRHAGE [None]
